FAERS Safety Report 25589871 (Version 1)
Quarter: 2025Q3

REPORT INFORMATION
  Report Type: Spontaneous
  Country: EU (occurrence: EU)
  Receive Date: 20250722
  Receipt Date: 20250722
  Transmission Date: 20251021
  Serious: Yes (Other)
  Sender: TAKEDA
  Company Number: EU-TAKEDA-2025TUS064266

PATIENT
  Age: 60 Year
  Sex: Male

DRUGS (1)
  1. LISDEXAMFETAMINE DIMESYLATE [Suspect]
     Active Substance: LISDEXAMFETAMINE DIMESYLATE
     Indication: Attention deficit hyperactivity disorder

REACTIONS (6)
  - Leukaemia [Recovered/Resolved]
  - Wrong technique in product usage process [Unknown]
  - Therapeutic response shortened [Unknown]
  - Urinary incontinence [Unknown]
  - Bladder discomfort [Unknown]
  - Benign prostatic hyperplasia [Unknown]
